FAERS Safety Report 8591412-3 (Version None)
Quarter: 2012Q3

REPORT INFORMATION
  Report Type: 
  Country: None (occurrence: None)
  Receive Date: 20120803
  Receipt Date: 20120803
  Transmission Date: 20120928
  Serious: Yes (Other)
  Sender: FDA-Public Use
  Company Number: None

PATIENT
  Sex: Female
  Weight: 92.9874 kg

DRUGS (1)
  1. CRESTOR [Suspect]
     Indication: BLOOD CHOLESTEROL INCREASED
     Dosage: 1 DAY
     Dates: start: 20100301, end: 20120726

REACTIONS (3)
  - PSYCHIATRIC SYMPTOM [None]
  - AMNESIA [None]
  - CONFUSIONAL STATE [None]
